FAERS Safety Report 23441525 (Version 4)
Quarter: 2024Q2

REPORT INFORMATION
  Report Type: Spontaneous
  Country: JP (occurrence: JP)
  Receive Date: 20240125
  Receipt Date: 20240404
  Transmission Date: 20240716
  Serious: Yes (Hospitalization, Other)
  Sender: FDA-Public Use
  Company Number: JP-ADVANZ PHARMA-202401000473

PATIENT

DRUGS (12)
  1. ZONISAMIDE [Suspect]
     Active Substance: ZONISAMIDE
     Indication: Epilepsy
     Dosage: 300 MG, QD
     Route: 048
     Dates: start: 20071116, end: 20190417
  2. ZONISAMIDE [Suspect]
     Active Substance: ZONISAMIDE
     Dosage: 200 MG, BID
     Route: 048
     Dates: start: 20190418, end: 20240215
  3. ZONISAMIDE [Suspect]
     Active Substance: ZONISAMIDE
     Dosage: UNK, DOSE REDUCED
     Route: 048
     Dates: start: 20240118, end: 20240215
  4. MYSTAN [Suspect]
     Active Substance: CLOBAZAM
     Indication: Epilepsy
     Dosage: 10 MG, BID
     Route: 048
     Dates: start: 20080104, end: 20100716
  5. MYSTAN [Suspect]
     Active Substance: CLOBAZAM
     Dosage: 25 MG, QD
     Route: 048
     Dates: start: 20100716, end: 20161007
  6. MYSTAN [Suspect]
     Active Substance: CLOBAZAM
     Dosage: 15 MG, BID
     Route: 048
     Dates: start: 20161007
  7. MYSTAN [Suspect]
     Active Substance: CLOBAZAM
     Dosage: 35 MG, QD
     Route: 048
     Dates: start: 201706
  8. MYSTAN [Suspect]
     Active Substance: CLOBAZAM
     Dosage: 20 MG, BID
     Route: 048
     Dates: start: 20181214
  9. VALPROATE SODIUM [Concomitant]
     Active Substance: VALPROATE SODIUM
     Dosage: 800 MG
     Dates: start: 19980916, end: 19980917
  10. VALPROATE SODIUM [Concomitant]
     Active Substance: VALPROATE SODIUM
     Dosage: UNK, DOSE REDUCTION OF DEPAKENE WAS STARTED
     Dates: start: 200307
  11. VALPROATE SODIUM [Concomitant]
     Active Substance: VALPROATE SODIUM
     Dosage: 800 MG (DOSE RETURNED)
     Dates: start: 200309, end: 200711
  12. TEGRETOL [Concomitant]
     Active Substance: CARBAMAZEPINE
     Dosage: UNK
     Dates: start: 20071102, end: 20071116

REACTIONS (1)
  - Nephrolithiasis [Recovering/Resolving]

NARRATIVE: CASE EVENT DATE: 20240115
